FAERS Safety Report 5590146-7 (Version None)
Quarter: 2008Q1

REPORT INFORMATION
  Report Type: 
  Country: None (occurrence: None)
  Receive Date: 20080114
  Receipt Date: 20070504
  Transmission Date: 20080703
  Serious: No
  Sender: FDA-Public Use
  Company Number: US-ABBOTT-07P-163-0367285-00

PATIENT
  Sex: Male
  Weight: 12.667 kg

DRUGS (1)
  1. OMNICEF [Suspect]
     Indication: OTITIS MEDIA
     Route: 048
     Dates: start: 20070410

REACTIONS (3)
  - EYE SWELLING [None]
  - PYREXIA [None]
  - RASH MACULAR [None]
